FAERS Safety Report 4282842-9 (Version None)
Quarter: 2004Q1

REPORT INFORMATION
  Report Type: 
  Country: None (occurrence: None)
  Receive Date: 20040130
  Receipt Date: 20030603
  Transmission Date: 20041129
  Serious: No
  Sender: FDA-Public Use
  Company Number: US-BRISTOL-MYERS SQUIBB COMPANY-12291233

PATIENT
  Age: 91 Year
  Sex: Female
  Weight: 50 kg

DRUGS (5)
  1. SERZONE [Suspect]
     Indication: DEPRESSION
     Dosage: 300 MG AT BEDTIME, THEN DECREASE DOSE TO 250 MG HS, THEN 150 MG DAILY.
     Route: 048
     Dates: start: 20020801
  2. SERZONE [Suspect]
     Indication: INSOMNIA
     Dosage: 300 MG AT BEDTIME, THEN DECREASE DOSE TO 250 MG HS, THEN 150 MG DAILY.
     Route: 048
     Dates: start: 20020801
  3. AMBIEN [Concomitant]
  4. PRILOSEC [Concomitant]
  5. BUSPAR [Concomitant]

REACTIONS (2)
  - SWOLLEN TONGUE [None]
  - TREMOR [None]
